FAERS Safety Report 4898071-1 (Version None)
Quarter: 2006Q1

REPORT INFORMATION
  Report Type: 
  Country: None (occurrence: None)
  Receive Date: 20060201
  Receipt Date: 20060105
  Transmission Date: 20060701
  Serious: Yes (Hospitalization, Other)
  Sender: FDA-Public Use
  Company Number: US-AMGEN-STX163725

PATIENT
  Sex: Male

DRUGS (4)
  1. ENBREL [Suspect]
     Indication: ANKYLOSING SPONDYLITIS
     Route: 058
     Dates: start: 20040315, end: 20051223
  2. PREDNISONE [Concomitant]
     Indication: ARTHRALGIA
     Dates: start: 20051201, end: 20051201
  3. PREDNISONE [Concomitant]
     Route: 048
  4. NSAIDS [Concomitant]

REACTIONS (11)
  - CATHETER RELATED INFECTION [None]
  - ENCEPHALOPATHY [None]
  - ENDOCARDITIS [None]
  - ENDODONTIC PROCEDURE [None]
  - INCOHERENT [None]
  - MITRAL VALVE INCOMPETENCE [None]
  - SEPTIC SHOCK [None]
  - STAPHYLOCOCCAL INFECTION [None]
  - STREPTOCOCCAL BACTERAEMIA [None]
  - STREPTOCOCCAL SEPSIS [None]
  - TOOTH DISORDER [None]
